FAERS Safety Report 11360470 (Version 1)
Quarter: 2015Q3

REPORT INFORMATION
  Report Type: Spontaneous
  Country: BE (occurrence: BE)
  Receive Date: 20150810
  Receipt Date: 20150810
  Transmission Date: 20151125
  Serious: Yes (Other)
  Sender: FDA-Public Use
  Company Number: BE-JNJFOC-20150803532

PATIENT
  Age: 88 Year
  Sex: Female

DRUGS (6)
  1. BEFACT [Concomitant]
     Route: 065
  2. EMCONCOR [Concomitant]
     Active Substance: BISOPROLOL FUMARATE
     Route: 065
  3. XARELTO [Suspect]
     Active Substance: RIVAROXABAN
     Indication: ATRIAL FIBRILLATION
     Route: 048
  4. STILNOCT [Concomitant]
     Active Substance: ZOLPIDEM TARTRATE
     Route: 065
  5. XARELTO [Suspect]
     Active Substance: RIVAROXABAN
     Indication: CEREBROVASCULAR ACCIDENT PROPHYLAXIS
     Route: 048
  6. DIAMICRON [Concomitant]
     Active Substance: GLICLAZIDE
     Route: 065

REACTIONS (2)
  - Cerebral artery embolism [Unknown]
  - Off label use [Unknown]

NARRATIVE: CASE EVENT DATE: 20150630
